FAERS Safety Report 4387456-8 (Version None)
Quarter: 2004Q2

REPORT INFORMATION
  Report Type: 
  Country: None (occurrence: None)
  Receive Date: 20040630
  Receipt Date: 20040310
  Transmission Date: 20050107
  Serious: No
  Sender: FDA-Public Use
  Company Number: US-BRISTOL-MYERS SQUIBB COMPANY-12530218

PATIENT
  Age: 34 Year
  Sex: Female

DRUGS (8)
  1. REYATAZ [Suspect]
     Indication: HIV INFECTION
     Route: 048
     Dates: start: 20040218
  2. RITONAVIR [Concomitant]
     Indication: HIV INFECTION
     Dates: start: 20040218
  3. VIREAD [Concomitant]
  4. ZIAGEN [Concomitant]
  5. VIDEX EC [Concomitant]
  6. BACTRIM [Concomitant]
  7. ZITHROMAX [Concomitant]
  8. NEXIUM [Concomitant]

REACTIONS (3)
  - ALOPECIA [None]
  - HYPERVITAMINOSIS A [None]
  - SKIN HYPERPIGMENTATION [None]
